FAERS Safety Report 4319487-8 (Version None)
Quarter: 2004Q1

REPORT INFORMATION
  Report Type: 
  Country: None (occurrence: None)
  Receive Date: 20040316
  Receipt Date: 20040303
  Transmission Date: 20041129
  Serious: Yes (Death)
  Sender: FDA-Public Use
  Company Number: USA040360885

PATIENT
  Age: 74 Year
  Sex: Female
  Weight: 27 kg

DRUGS (3)
  1. ZYPREXA [Suspect]
     Dates: start: 20020507
  2. TEGRETOL [Concomitant]
  3. DILANTIN [Concomitant]

REACTIONS (12)
  - ALOPECIA [None]
  - DECUBITUS ULCER [None]
  - DEHYDRATION [None]
  - DEMENTIA [None]
  - DIARRHOEA [None]
  - MARKEDLY REDUCED DIETARY INTAKE [None]
  - MUSCULAR WEAKNESS [None]
  - OXYGEN SATURATION DECREASED [None]
  - PARALYSIS [None]
  - PYREXIA [None]
  - SKIN DISORDER [None]
  - WHITE BLOOD CELL COUNT INCREASED [None]
